FAERS Safety Report 6359091-3 (Version None)
Quarter: 2009Q3

REPORT INFORMATION
  Report Type: 
  Country: None (occurrence: None)
  Receive Date: 20090917
  Receipt Date: 20070926
  Transmission Date: 20100115
  Serious: Yes (Other)
  Sender: FDA-Public Use
  Company Number: US-ASTRAZENECA-2007UW22652

PATIENT
  Age: 53 Year
  Sex: Female
  Weight: 81.6 kg

DRUGS (47)
  1. SEROQUEL [Suspect]
     Indication: POST-TRAUMATIC STRESS DISORDER
     Dosage: 25 MG - 50 MG
     Route: 048
     Dates: start: 20021003
  2. SEROQUEL [Suspect]
     Indication: DEPRESSION
     Dosage: 25 MG - 50 MG
     Route: 048
     Dates: start: 20021003
  3. SEROQUEL [Suspect]
     Indication: INSOMNIA
     Dosage: 25 MG - 50 MG
     Route: 048
     Dates: start: 20021003
  4. SEROQUEL [Suspect]
     Indication: ANXIETY
     Dosage: 25 MG - 50 MG
     Route: 048
     Dates: start: 20021003
  5. SEROQUEL [Suspect]
     Indication: SLEEP DISORDER
     Dosage: 25 MG - 50 MG
     Route: 048
     Dates: start: 20021003
  6. SEROQUEL [Suspect]
     Route: 048
     Dates: start: 20021004, end: 20050821
  7. SEROQUEL [Suspect]
     Route: 048
     Dates: start: 20021004, end: 20050821
  8. SEROQUEL [Suspect]
     Route: 048
     Dates: start: 20021004, end: 20050821
  9. SEROQUEL [Suspect]
     Route: 048
     Dates: start: 20021004, end: 20050821
  10. SEROQUEL [Suspect]
     Route: 048
     Dates: start: 20021004, end: 20050821
  11. SEROQUEL [Suspect]
     Route: 048
     Dates: start: 20030925
  12. SEROQUEL [Suspect]
     Route: 048
     Dates: start: 20030925
  13. SEROQUEL [Suspect]
     Route: 048
     Dates: start: 20030925
  14. SEROQUEL [Suspect]
     Route: 048
     Dates: start: 20030925
  15. SEROQUEL [Suspect]
     Route: 048
     Dates: start: 20030925
  16. SEROQUEL [Suspect]
     Route: 048
     Dates: start: 20040112
  17. SEROQUEL [Suspect]
     Route: 048
     Dates: start: 20040112
  18. SEROQUEL [Suspect]
     Route: 048
     Dates: start: 20040112
  19. SEROQUEL [Suspect]
     Route: 048
     Dates: start: 20040112
  20. SEROQUEL [Suspect]
     Route: 048
     Dates: start: 20040112
  21. SEROQUEL [Suspect]
     Dosage: 100 MG IN THE MORNING AND 300 MG AT NIGHT
     Route: 048
     Dates: start: 20050826
  22. SEROQUEL [Suspect]
     Dosage: 100 MG IN THE MORNING AND 300 MG AT NIGHT
     Route: 048
     Dates: start: 20050826
  23. SEROQUEL [Suspect]
     Dosage: 100 MG IN THE MORNING AND 300 MG AT NIGHT
     Route: 048
     Dates: start: 20050826
  24. SEROQUEL [Suspect]
     Dosage: 100 MG IN THE MORNING AND 300 MG AT NIGHT
     Route: 048
     Dates: start: 20050826
  25. SEROQUEL [Suspect]
     Dosage: 100 MG IN THE MORNING AND 300 MG AT NIGHT
     Route: 048
     Dates: start: 20050826
  26. TRAZODONE [Concomitant]
     Dosage: 50 - 100 MG
     Route: 048
     Dates: start: 19971124
  27. TRAZODONE [Concomitant]
     Dates: start: 19990928, end: 20070316
  28. WELLBUTRIN [Concomitant]
     Dosage: 75-150 MG
     Dates: start: 19990208, end: 19990704
  29. AMBIEN [Concomitant]
     Indication: SLEEP DISORDER
     Dosage: 10 MG - 20 MG
     Route: 048
     Dates: start: 19991010
  30. XANAX [Concomitant]
     Route: 048
     Dates: start: 19980417
  31. LEXAPRO [Concomitant]
     Dates: start: 20040112
  32. CELEXA [Concomitant]
     Dates: start: 20020628
  33. PREMARIN [Concomitant]
     Dates: start: 20020726
  34. MEDROXYPROGESTERONE [Concomitant]
     Route: 048
     Dates: start: 20021102
  35. PRILOSEC [Concomitant]
     Route: 048
     Dates: start: 20021114
  36. OXYCODONE [Concomitant]
     Dosage: 5/ 325 AS PRESCRIBED
     Route: 048
     Dates: start: 20030622
  37. ADVAIR DISKUS 100/50 [Concomitant]
     Dosage: 100/50 AS PRESCRIBED
     Dates: start: 20070819
  38. METFORMIN HCL [Concomitant]
     Dosage: 500 MG - 1500 MG
     Route: 048
     Dates: start: 20040921
  39. GABAPENTIN [Concomitant]
     Route: 048
     Dates: start: 20040921
  40. IBUPROFEN [Concomitant]
     Route: 048
     Dates: start: 20040625
  41. GLYBURIDE [Concomitant]
     Dosage: 2.5 MG - 5 MG
     Route: 048
     Dates: start: 20040907
  42. HYDROCHLOROTHIAZIDE [Concomitant]
     Route: 048
     Dates: start: 20040816
  43. CITALOPRAM HYDROBROMIDE [Concomitant]
     Route: 048
     Dates: start: 20050826
  44. PLAVIX [Concomitant]
     Indication: CAROTID ARTERY STENOSIS
     Route: 048
     Dates: start: 20050826
  45. ACEBUTOLOL [Concomitant]
     Route: 048
     Dates: start: 20050826
  46. ASPIRIN [Concomitant]
     Route: 048
     Dates: start: 20050826
  47. LANTUS [Concomitant]
     Dosage: 20 - 60 IU
     Route: 058
     Dates: start: 20050826

REACTIONS (14)
  - AMNESIA [None]
  - BREAST INFECTION [None]
  - CARDIAC DISORDER [None]
  - DIABETES MELLITUS [None]
  - DIABETES MELLITUS INADEQUATE CONTROL [None]
  - EYELID OPERATION [None]
  - HYPERGLYCAEMIA [None]
  - INFECTION [None]
  - MAMMOPLASTY [None]
  - PNEUMONIA [None]
  - POLYNEUROPATHY [None]
  - SKIN GRAFT [None]
  - TYPE 1 DIABETES MELLITUS [None]
  - TYPE 2 DIABETES MELLITUS [None]
